FAERS Safety Report 15429246 (Version 1)
Quarter: 2018Q3

REPORT INFORMATION
  Report Type: Spontaneous
  Country: US (occurrence: US)
  Receive Date: 20180920
  Receipt Date: 20180920
  Transmission Date: 20181010
  Serious: No
  Sender: FDA-Public Use
  Company Number: None

PATIENT
  Age: 60 Year
  Sex: Male

DRUGS (1)
  1. ENTYVIO [Suspect]
     Active Substance: VEDOLIZUMAB
     Dates: start: 201612

REACTIONS (5)
  - Myalgia [None]
  - Back pain [None]
  - Subcutaneous abscess [None]
  - Pruritus [None]
  - Skin infection [None]

NARRATIVE: CASE EVENT DATE: 20170417
